FAERS Safety Report 7042458-8 (Version None)
Quarter: 2010Q4

REPORT INFORMATION
  Report Type: 
  Country: None (occurrence: None)
  Receive Date: 20101013
  Receipt Date: 20100628
  Transmission Date: 20110411
  Serious: No
  Sender: FDA-Public Use
  Company Number: US-ASTRAZENECA-2010SE30129

PATIENT
  Age: 10 Year
  Sex: Male
  Weight: 40.8 kg

DRUGS (2)
  1. SYMBICORT [Suspect]
     Indication: OBSTRUCTIVE AIRWAYS DISORDER
     Dosage: 80 MCG ONE PUFF TWO TIMES A DAY
     Route: 055
     Dates: start: 20100401
  2. SYMBICORT [Suspect]
     Dosage: 160 MCG ONE PUFF TWO TIMES A DAY
     Route: 055

REACTIONS (3)
  - ABDOMINAL PAIN UPPER [None]
  - DRUG DOSE OMISSION [None]
  - DYSPNOEA [None]
